FAERS Safety Report 16826080 (Version 2)
Quarter: 2020Q4

REPORT INFORMATION
  Report Type: Spontaneous
  Country: US (occurrence: US)
  Receive Date: 20190919
  Receipt Date: 20201104
  Transmission Date: 20210113
  Serious: Yes (Life-Threatening, Hospitalization, Other)
  Sender: FDA-Public Use
  Company Number: US-SUN PHARMACEUTICAL INDUSTRIES LTD-2019R1-220923

PATIENT
  Age: 23 Year
  Sex: Female

DRUGS (1)
  1. HYDROXYCHLOROQUINE [Suspect]
     Active Substance: HYDROXYCHLOROQUINE
     Indication: PRODUCT USED FOR UNKNOWN INDICATION
     Dosage: UNK
     Route: 065

REACTIONS (8)
  - Ejection fraction abnormal [Recovering/Resolving]
  - Toxicity to various agents [Unknown]
  - Hyperkalaemia [Unknown]
  - Cardiac arrest [Unknown]
  - Ventricular fibrillation [Unknown]
  - Cardiac failure acute [Unknown]
  - Electrocardiogram QT prolonged [Recovered/Resolved]
  - Mental status changes [Unknown]
